FAERS Safety Report 23220511 (Version 1)
Quarter: 2023Q4

REPORT INFORMATION
  Report Type: Spontaneous
  Country: SE (occurrence: SE)
  Receive Date: 20231123
  Receipt Date: 20231123
  Transmission Date: 20240110
  Serious: Yes (Disabling)
  Sender: FDA-Public Use
  Company Number: SE-AMGEN-SWESP2023205630

PATIENT
  Age: 27 Year
  Sex: Female
  Weight: 57 kg

DRUGS (1)
  1. AIMOVIG [Suspect]
     Active Substance: ERENUMAB-AOOE
     Indication: Migraine
     Dosage: 140 ML, QMO
     Route: 065
     Dates: start: 20170102

REACTIONS (2)
  - Infertility [Recovered/Resolved with Sequelae]
  - Menopause [Recovered/Resolved with Sequelae]

NARRATIVE: CASE EVENT DATE: 20180203
